FAERS Safety Report 22098074 (Version 1)
Quarter: 2023Q1

REPORT INFORMATION
  Report Type: Spontaneous
  Country: US (occurrence: None)
  Receive Date: 20230314
  Receipt Date: 20230314
  Transmission Date: 20230418
  Serious: Yes (unspecified)
  Sender: FDA-Public Use
  Company Number: None

PATIENT
  Age: 55 Year
  Sex: Female

DRUGS (14)
  1. EUFLEXXA [Suspect]
     Active Substance: HYALURONATE SODIUM
     Indication: Osteoarthritis
     Dates: start: 20230131, end: 20230214
  2. CORTISONE [Suspect]
     Active Substance: CORTISONE
  3. LEVOTHYROXINE [Concomitant]
     Active Substance: LEVOTHYROXINE
  4. ESTRADIOL [Concomitant]
     Active Substance: ESTRADIOL
  5. TYLENOL [Concomitant]
     Active Substance: ACETAMINOPHEN
  6. IBUPROFEN [Concomitant]
     Active Substance: IBUPROFEN
  7. ALEVE [Concomitant]
     Active Substance: NAPROXEN SODIUM
  8. CINNAMON [Concomitant]
     Active Substance: CINNAMON
  9. ASCORBIC ACID\CHONDROITIN SULFATE (BOVINE)\GLUCOSAMINE SULFATE\MANGANE [Concomitant]
     Active Substance: ASCORBIC ACID\CHONDROITIN SULFATE (BOVINE)\GLUCOSAMINE SULFATE\MANGANESE
  10. VITAMIN C [Concomitant]
     Active Substance: ASCORBIC ACID
  11. SUDAFED [Concomitant]
     Active Substance: PSEUDOEPHEDRINE HYDROCHLORIDE
  12. COLACE [Concomitant]
     Active Substance: DOCUSATE SODIUM
  13. VOLTAREN [Concomitant]
     Active Substance: DICLOFENAC SODIUM
  14. Arthritis pain creme [Concomitant]

REACTIONS (9)
  - Gait disturbance [None]
  - Dyspnoea exertional [None]
  - Peripheral swelling [None]
  - Joint swelling [None]
  - Joint swelling [None]
  - Arthralgia [None]
  - Dysstasia [None]
  - Joint stiffness [None]
  - Skin tightness [None]

NARRATIVE: CASE EVENT DATE: 20230221
